FAERS Safety Report 24648049 (Version 1)
Quarter: 2024Q4

REPORT INFORMATION
  Report Type: Spontaneous
  Country: IN (occurrence: IN)
  Receive Date: 20241121
  Receipt Date: 20241121
  Transmission Date: 20250114
  Serious: Yes (Hospitalization, Other)
  Sender: SANOFI AVENTIS
  Company Number: IN-SA-2024SA336721

PATIENT
  Age: 19 Year
  Sex: Female
  Weight: 86 kg

DRUGS (5)
  1. ENOXAPARIN SODIUM [Suspect]
     Active Substance: ENOXAPARIN SODIUM
     Indication: Cerebral venous sinus thrombosis
     Dosage: 1 MG/KG, Q12H
     Route: 058
  2. NORELGESTROMIN [Concomitant]
     Active Substance: NORELGESTROMIN
     Dosage: QW
  3. ETHINYL ESTRADIOL [Concomitant]
     Active Substance: ETHINYL ESTRADIOL
     Dosage: QW
  4. RIVAROXABAN [Concomitant]
     Active Substance: RIVAROXABAN
     Indication: Cerebral venous sinus thrombosis
     Dosage: UNK
     Route: 048
  5. ACETAMINOPHEN AND CODEINE [Concomitant]
     Active Substance: ACETAMINOPHEN\CODEINE PHOSPHATE
     Indication: Cerebral venous sinus thrombosis
     Dosage: UNK

REACTIONS (6)
  - Cranial nerve paralysis [Not Recovered/Not Resolved]
  - Subarachnoid haemorrhage [Recovering/Resolving]
  - Diplopia [Recovering/Resolving]
  - Papilloedema [Recovering/Resolving]
  - Nausea [Recovering/Resolving]
  - Intracranial pressure increased [Recovering/Resolving]
